FAERS Safety Report 19755218 (Version 1)
Quarter: 2021Q3

REPORT INFORMATION
  Report Type: Spontaneous
  Country: US (occurrence: US)
  Receive Date: 20210827
  Receipt Date: 20210827
  Transmission Date: 20211014
  Serious: Yes (Death)
  Sender: FDA-Public Use
  Company Number: None

PATIENT
  Age: 86 Year
  Sex: Male

DRUGS (6)
  1. LANTUS [Concomitant]
     Active Substance: INSULIN GLARGINE
     Dates: start: 20210412
  2. SYNTHROID [Concomitant]
     Active Substance: LEVOTHYROXINE SODIUM
     Dates: start: 20210507
  3. LISIONPRIL [Concomitant]
     Dates: start: 20210507
  4. METOPROLOL TARTRATE. [Concomitant]
     Active Substance: METOPROLOL TARTRATE
     Dates: start: 20210507
  5. TESTOST.ENANN [Concomitant]
     Dates: start: 20210507
  6. TESTOSTERONE ENANTHATE MDV [Suspect]
     Active Substance: TESTOSTERONE ENANTHATE
     Indication: TESTICULAR FAILURE
     Dosage: ?          OTHER FREQUENCY:EVERY 14 DAYS;?
     Route: 030
     Dates: start: 20210210, end: 20210826

REACTIONS (1)
  - Death [None]

NARRATIVE: CASE EVENT DATE: 20210826
